FAERS Safety Report 10683258 (Version 2)
Quarter: 2014Q4

REPORT INFORMATION
  Report Type: Spontaneous
  Country: US (occurrence: US)
  Receive Date: 20141230
  Receipt Date: 20141230
  Transmission Date: 20150529
  Serious: Yes (Other)
  Sender: FDA-Public Use
  Company Number: US-PFIZER INC-2014324748

PATIENT
  Age: 53 Year
  Sex: Female
  Weight: 93 kg

DRUGS (21)
  1. ZANAFLEX [Concomitant]
     Active Substance: TIZANIDINE HYDROCHLORIDE
     Indication: MUSCLE SPASMS
  2. OXYGEN. [Concomitant]
     Active Substance: OXYGEN
     Dosage: UNK  (2 LITES NASAL CANNULA)
     Dates: start: 20110624
  3. TRAZODONE HYDROCHLORIDE. [Concomitant]
     Active Substance: TRAZODONE HYDROCHLORIDE
     Dosage: 200 MG, 1X/DAY (TAKE 2 TABLETS BY MOUTH AT BEDTIME)
     Route: 048
     Dates: start: 20140428
  4. ALPRAZOLAM. [Concomitant]
     Active Substance: ALPRAZOLAM
     Indication: ANXIETY
     Dosage: UNK, 3X/DAY (ONE THREE TIMES DAILY AS NEEDED)
     Dates: start: 20130403
  5. LINZESS [Concomitant]
     Active Substance: LINACLOTIDE
     Dosage: 145 ?G, DAILY
     Route: 048
     Dates: start: 20130604
  6. LIDODERM [Concomitant]
     Active Substance: LIDOCAINE
     Dosage: UNK, DAILY (ON 12 OFF 12 HOURS)
     Dates: start: 20140725
  7. LYRICA [Suspect]
     Active Substance: PREGABALIN
     Indication: POST-TRAUMATIC STRESS DISORDER
  8. SPIRIVA [Concomitant]
     Active Substance: TIOTROPIUM BROMIDE MONOHYDRATE
     Dosage: 1 UNK, DAILY (INHALE ONE CAPSULE DAILY)
     Dates: start: 20131104
  9. CARAFATE [Concomitant]
     Active Substance: SUCRALFATE
     Dosage: 1 G, 4X/DAY
     Route: 048
     Dates: start: 20130625
  10. CALCIUM CARBONATE W/VITAMIN D [Concomitant]
     Dosage: 600-400 MG UNIT TABLET, TWICE A DAY
     Route: 048
     Dates: start: 20120312
  11. HYDROCODONE [Concomitant]
     Active Substance: HYDROCODONE
     Indication: MUSCLE RELAXANT THERAPY
     Dosage: UNK
  12. XANAX [Concomitant]
     Active Substance: ALPRAZOLAM
     Indication: POST-TRAUMATIC STRESS DISORDER
     Dosage: UNK
  13. PROCET /USA/ [Concomitant]
     Active Substance: ACETAMINOPHEN\HYDROCODONE BITARTRATE
     Indication: PAIN
     Dosage: UNK (10-325 MG TABS, 1 EVERY 6-8 HOURS)
     Dates: start: 20130806
  14. LYRICA [Suspect]
     Active Substance: PREGABALIN
     Indication: NEUROPATHY PERIPHERAL
     Dosage: 200 MG, 3X/DAY
     Route: 048
  15. ALBUTEROL SULFATE. [Concomitant]
     Active Substance: ALBUTEROL SULFATE
     Dosage: UNK (2.5MG/3ML)
     Dates: start: 20120312
  16. MULTIVITAMINS [Suspect]
     Active Substance: VITAMINS
     Dosage: UNK, DAILY
     Route: 048
     Dates: start: 20120312
  17. LYRICA [Suspect]
     Active Substance: PREGABALIN
     Indication: FIBROMYALGIA
     Dosage: 200 MG, 3X/DAY
     Route: 048
     Dates: start: 20130703
  18. CELEXA [Concomitant]
     Active Substance: CITALOPRAM HYDROBROMIDE
     Indication: DEPRESSION
     Dosage: 20 MG, 2X/DAY
     Dates: start: 20140206
  19. ZANAFLEX [Concomitant]
     Active Substance: TIZANIDINE HYDROCHLORIDE
     Indication: MUSCLE RELAXANT THERAPY
     Dosage: 4 MG, 3X/DAY (TAKE ONE PO THREE TIMES A DAY AS NEEDED)
     Route: 048
     Dates: start: 20141010
  20. VENTOLIN HFA/ ACT AERS [Concomitant]
     Dosage: UNK (ONE TO TWO PUFFS EVERY 4 HOURS)
     Dates: start: 20110624
  21. NEXIUM [Concomitant]
     Active Substance: ESOMEPRAZOLE MAGNESIUM
     Dosage: 40 MG, DAILY
     Route: 048
     Dates: start: 20130402

REACTIONS (36)
  - Diabetic neuropathy [Unknown]
  - Radiculitis [Unknown]
  - Gastrooesophageal reflux disease [Unknown]
  - Dysphagia [Unknown]
  - Spinal osteoarthritis [Unknown]
  - Flank pain [Unknown]
  - Type 2 diabetes mellitus [Unknown]
  - Spinal osteoarthritis [Unknown]
  - Gastrointestinal disorder [Unknown]
  - Diverticulum [Unknown]
  - Dysphonia [Unknown]
  - Hyperthyroidism [Unknown]
  - Sacroiliitis [Unknown]
  - Cervical radiculopathy [Unknown]
  - Gastritis [Unknown]
  - Tobacco user [Unknown]
  - Thyroid neoplasm [Unknown]
  - Angina pectoris [Unknown]
  - Back pain [Unknown]
  - Anxiety [Unknown]
  - Neuritis [Unknown]
  - Musculoskeletal chest pain [Unknown]
  - Hyperglycaemia [Unknown]
  - Neuralgia [Unknown]
  - Generalised anxiety disorder [Unknown]
  - Pain [Unknown]
  - Chronic obstructive pulmonary disease [Unknown]
  - Bronchitis [Unknown]
  - Disease progression [Unknown]
  - Hiatus hernia [Unknown]
  - Haemorrhoids [Unknown]
  - Haemoptysis [Unknown]
  - Drug ineffective [Unknown]
  - Urinary tract infection [Unknown]
  - Large intestine polyp [Unknown]
  - Rotator cuff syndrome [Unknown]

NARRATIVE: CASE EVENT DATE: 20130228
